FAERS Safety Report 18034694 (Version 2)
Quarter: 2020Q3

REPORT INFORMATION
  Report Type: Other
  Country: PL (occurrence: PL)
  Receive Date: 20200716
  Receipt Date: 20200806
  Transmission Date: 20201103
  Serious: Yes (Death, Other)
  Sender: FDA-Public Use
  Company Number: PL-CELLTRION INC.-2020PL024348

PATIENT

DRUGS (6)
  1. RITUXIMAB (UNKNOWN) [Suspect]
     Active Substance: RITUXIMAB
     Indication: B-CELL LYMPHOMA
     Dosage: 375 MG/M2
     Route: 042
     Dates: start: 20200203, end: 20200526
  2. DEXAVEN [Concomitant]
     Active Substance: DEXAMETHASONE
     Indication: MENINGITIS
     Dosage: UNK
     Route: 065
  3. IBRUTINIB [Suspect]
     Active Substance: IBRUTINIB
     Indication: B-CELL LYMPHOMA
     Dosage: UNK
     Route: 048
     Dates: start: 20200203, end: 20200602
  4. AMPICILLIN [Concomitant]
     Active Substance: AMPICILLIN
     Indication: MENINGITIS
     Route: 065
  5. VANCOMYCIN [Concomitant]
     Active Substance: VANCOMYCIN
     Indication: MENINGITIS
     Route: 065
  6. CEFTRIAXON [Concomitant]
     Active Substance: CEFTRIAXONE
     Indication: MENINGITIS
     Dosage: UNK
     Route: 065

REACTIONS (3)
  - Meningitis [Fatal]
  - Immunodeficiency [Fatal]
  - Death [Fatal]

NARRATIVE: CASE EVENT DATE: 20200605
